FAERS Safety Report 6241609-2 (Version None)
Quarter: 2009Q2

REPORT INFORMATION
  Report Type: 
  Country: None (occurrence: None)
  Receive Date: 20090623
  Receipt Date: 20060104
  Transmission Date: 20091009
  Serious: Yes (Life-Threatening, Hospitalization)
  Sender: FDA-Public Use
  Company Number: IL-ROCHE-433084

PATIENT
  Sex: Male
  Weight: 72 kg

DRUGS (23)
  1. DACLIZUMAB [Suspect]
     Dosage: LOADING DOSE
     Route: 042
     Dates: start: 20040830, end: 20040830
  2. DACLIZUMAB [Suspect]
     Route: 042
     Dates: start: 20040913, end: 20041027
  3. MYCOPHENOLATE MOFETIL [Suspect]
     Route: 048
     Dates: start: 20040830
  4. MYCOPHENOLATE MOFETIL [Suspect]
     Route: 048
     Dates: start: 20040929, end: 20041023
  5. MYCOPHENOLATE MOFETIL [Suspect]
     Route: 048
     Dates: start: 20050306
  6. MYCOPHENOLATE MOFETIL [Suspect]
     Route: 048
     Dates: start: 20050717
  7. CYCLOSPORINE [Suspect]
     Route: 048
     Dates: start: 20040830
  8. CYCLOSPORINE [Suspect]
     Route: 048
     Dates: start: 20040906
  9. CYCLOSPORINE [Suspect]
     Route: 048
     Dates: start: 20040909
  10. CYCLOSPORINE [Suspect]
     Route: 048
     Dates: start: 20050515
  11. PREDNISONE [Suspect]
     Route: 048
     Dates: start: 20040906
  12. PREDNISONE [Suspect]
     Route: 048
     Dates: start: 20041031
  13. PREDNISONE [Suspect]
     Route: 048
     Dates: start: 20041101
  14. PREDNISONE [Suspect]
     Route: 048
     Dates: start: 20050109
  15. PREDNISONE [Suspect]
     Route: 048
     Dates: start: 20050306
  16. METHYLPREDNISOLONE [Suspect]
     Route: 042
     Dates: start: 20040830
  17. METHYLPREDNISOLONE [Suspect]
     Route: 042
     Dates: start: 20040902
  18. METHYLPREDNISOLONE [Suspect]
     Route: 042
     Dates: start: 20040904, end: 20040904
  19. OMEPRAZOLE [Concomitant]
  20. NORMITEN [Concomitant]
     Dates: start: 20040902
  21. GANCICLOVIR [Concomitant]
     Dates: start: 20040902
  22. SIMVASTATIN [Concomitant]
  23. VALGANCICLOVIR HCL [Concomitant]
     Dates: start: 20041010

REACTIONS (9)
  - BENIGN PROSTATIC HYPERPLASIA [None]
  - BLOOD CREATININE INCREASED [None]
  - EPIDIDYMITIS [None]
  - HYPERGLYCAEMIA [None]
  - ORCHITIS [None]
  - SEPSIS [None]
  - URINARY RETENTION [None]
  - URINARY TRACT INFECTION [None]
  - UROSEPSIS [None]
